FAERS Safety Report 7049405-3 (Version None)
Quarter: 2010Q4

REPORT INFORMATION
  Report Type: 
  Country: None (occurrence: None)
  Receive Date: 20101018
  Receipt Date: 20101012
  Transmission Date: 20110411
  Serious: Yes (Hospitalization)
  Sender: FDA-Public Use
  Company Number: DE-ROCHE-733631

PATIENT
  Sex: Female
  Weight: 80 kg

DRUGS (5)
  1. TRASTUZUMAB [Suspect]
     Dosage: DOSE LEVEL 6 MG/KG, FORM VIALS, LAST DOSE PRIOR TO SAE ON 29 SEP 2010
     Route: 042
     Dates: start: 20100616
  2. BEVACIZUMAB [Suspect]
     Dosage: DOSE LEVEL 15 MG/KG, FORM VIALS , LAST DOSE PRIOR TO SAE ON 29 SEP 2010
     Route: 042
     Dates: start: 20100617
  3. DOCETAXEL [Suspect]
     Dosage: DOSE LEVEL 75 MG/M2, FORM VIALS, LAST DOSE PRIOR TO SAE ON 29 SEP 2010
     Route: 042
     Dates: start: 20100617
  4. CARBOPLATIN [Suspect]
     Dosage: DOSE LEVEL 6 AUC, FORM VIALS, LAST DOSE PRIOR TO SAE 29 SEP 2010
     Route: 042
     Dates: start: 20100617
  5. METFORMIN [Concomitant]
     Dates: start: 20040801, end: 20100511

REACTIONS (2)
  - LARYNGITIS [None]
  - THROMBOCYTOPENIA [None]
